FAERS Safety Report 24309861 (Version 3)
Quarter: 2024Q4

REPORT INFORMATION
  Report Type: Report from Study
  Country: US (occurrence: US)
  Receive Date: 20240912
  Receipt Date: 20241106
  Transmission Date: 20250115
  Serious: Yes (Other)
  Sender: CSL BEHRING
  Company Number: US-BEH-2024178175

PATIENT
  Age: 70 Year
  Sex: Female

DRUGS (1)
  1. HIZENTRA [Suspect]
     Active Substance: HUMAN IMMUNOGLOBULIN G
     Indication: Product used for unknown indication
     Route: 065

REACTIONS (10)
  - Cognitive disorder [Not Recovered/Not Resolved]
  - Lung disorder [Unknown]
  - Chronic obstructive pulmonary disease [Unknown]
  - Respiratory disorder [Unknown]
  - Fatigue [Unknown]
  - Anxiety [Not Recovered/Not Resolved]
  - Fatigue [Not Recovered/Not Resolved]
  - Brain fog [Not Recovered/Not Resolved]
  - Skin reaction [Recovered/Resolved]
  - Slow response to stimuli [Not Recovered/Not Resolved]

NARRATIVE: CASE EVENT DATE: 20240501
